FAERS Safety Report 16421304 (Version 2)
Quarter: 2019Q4

REPORT INFORMATION
  Report Type: Spontaneous
  Country: US (occurrence: US)
  Receive Date: 20190612
  Receipt Date: 20191112
  Transmission Date: 20200122
  Serious: Yes (Other)
  Sender: FDA-Public Use
  Company Number: US-FARMAPROD-201906-0841

PATIENT
  Sex: Male
  Weight: 131.5 kg

DRUGS (5)
  1. OXERVATE [Suspect]
     Active Substance: CENEGERMIN-BKBJ
     Route: 047
     Dates: start: 20191008
  2. GENTAMICIN EYE DROPS [Concomitant]
     Indication: ULCERATIVE KERATITIS
     Route: 047
     Dates: start: 201902
  3. VORICONAZOLE EYE DROPS [Concomitant]
     Indication: ULCERATIVE KERATITIS
     Route: 047
     Dates: start: 201902
  4. OXERVATE [Suspect]
     Active Substance: CENEGERMIN-BKBJ
     Indication: ULCERATIVE KERATITIS
     Route: 047
     Dates: start: 20190528
  5. BESIVANCE EYE DROPS [Concomitant]
     Indication: ULCERATIVE KERATITIS
     Route: 047
     Dates: start: 201902

REACTIONS (1)
  - Eye infection viral [Recovered/Resolved]
